FAERS Safety Report 8977671 (Version 3)
Quarter: 2013Q1

REPORT INFORMATION
  Report Type: Report from Study
  Country: DE (occurrence: DE)
  Receive Date: 20121220
  Receipt Date: 20130108
  Transmission Date: 20140127
  Serious: Yes (Hospitalization)
  Sender: FDA-Public Use
  Company Number: DE-GLAXOSMITHKLINE-B0854152A

PATIENT
  Sex: Female
  Weight: 64 kg

DRUGS (2)
  1. TOPOTECAN [Suspect]
     Indication: OVARIAN CANCER RECURRENT
     Dosage: 2.1MG PER DAY
     Route: 042
     Dates: start: 20121126
  2. BLINDED TRIAL MEDICATION [Suspect]
     Indication: OVARIAN CANCER RECURRENT
     Dosage: 400MG PER DAY
     Route: 048
     Dates: start: 20121201

REACTIONS (1)
  - General physical health deterioration [Recovered/Resolved]
